FAERS Safety Report 5763595-1 (Version None)
Quarter: 2008Q2

REPORT INFORMATION
  Report Type: 
  Country: None (occurrence: None)
  Receive Date: 20080610
  Receipt Date: 20080529
  Transmission Date: 20081010
  Serious: Yes (Other)
  Sender: FDA-Public Use
  Company Number: PHHY2008DK09108

PATIENT
  Sex: Female

DRUGS (3)
  1. GLEEVEC [Suspect]
     Indication: CHRONIC MYELOID LEUKAEMIA
     Dosage: UNK
     Dates: start: 20070410
  2. CENTYL MED KALIUMKLORID [Concomitant]
     Indication: POLYURIA
     Dosage: 1 TABLET
  3. PROPYL-THIOURACIL [Concomitant]
     Indication: HYPERTHYROIDISM
     Dosage: 100 MG, QD

REACTIONS (5)
  - EYE PAIN [None]
  - LASER THERAPY [None]
  - PHOTOPSIA [None]
  - RETINAL DISORDER [None]
  - RETINAL INJURY [None]
